FAERS Safety Report 6902209-1 (Version None)
Quarter: 2010Q3

REPORT INFORMATION
  Report Type: 
  Country: None (occurrence: None)
  Receive Date: 20100803
  Receipt Date: 20080425
  Transmission Date: 20110219
  Serious: Yes (Other)
  Sender: FDA-Public Use
  Company Number: US-PFIZER INC-2008023784

PATIENT
  Sex: Male
  Weight: 97.5 kg

DRUGS (1)
  1. LYRICA [Suspect]
     Indication: NEUROPATHY PERIPHERAL
     Dates: start: 20080201, end: 20080301

REACTIONS (3)
  - DYSPNOEA [None]
  - FACE OEDEMA [None]
  - SWELLING [None]
